FAERS Safety Report 24710857 (Version 3)
Quarter: 2025Q4

REPORT INFORMATION
  Report Type: Spontaneous
  Country: JP (occurrence: JP)
  Receive Date: 20241209
  Receipt Date: 20251121
  Transmission Date: 20260118
  Serious: Yes (Hospitalization, Other)
  Sender: ROCHE
  Company Number: JP-CHUGAI-2024041348

PATIENT
  Age: 7 Decade
  Sex: Male

DRUGS (2)
  1. TECENTRIQ [Suspect]
     Active Substance: ATEZOLIZUMAB
     Indication: Hepatocellular carcinoma
     Dosage: UNK
     Route: 042
  2. AVASTIN [Suspect]
     Active Substance: BEVACIZUMAB
     Indication: Hepatocellular carcinoma
     Dosage: UNK
     Route: 042

REACTIONS (5)
  - Type 1 diabetes mellitus [Recovering/Resolving]
  - Immune-mediated pancreatitis [Recovering/Resolving]
  - Alanine aminotransferase increased [Recovering/Resolving]
  - Secondary adrenocortical insufficiency [Recovering/Resolving]
  - Aspartate aminotransferase increased [Recovering/Resolving]
